FAERS Safety Report 8201327-8 (Version None)
Quarter: 2012Q1

REPORT INFORMATION
  Report Type: 
  Country: None (occurrence: None)
  Receive Date: 20120312
  Receipt Date: 20120307
  Transmission Date: 20120608
  Serious: Yes (Other)
  Sender: FDA-Public Use
  Company Number: PHHY2012BR020845

PATIENT
  Age: 52 Year
  Sex: Male

DRUGS (4)
  1. DIOVAN [Suspect]
     Indication: HYPERTENSION
     Dosage: 160 MG, BID (MORNING + AFTERNOON)
  2. AMLODIPINE [Suspect]
     Dosage: 5 MG, BID (MORNING + AFTERNOON)
  3. DIOVAN [Suspect]
     Dosage: 160 MG, DAILY
  4. AMLODIPINE [Suspect]
     Dosage: 5 MG, DAILY

REACTIONS (3)
  - WEIGHT DECREASED [None]
  - DIVERTICULITIS [None]
  - HYPOTENSION [None]
